FAERS Safety Report 21125677 (Version 1)
Quarter: 2022Q3

REPORT INFORMATION
  Report Type: Report from Study
  Country: DE (occurrence: DE)
  Receive Date: 20220725
  Receipt Date: 20220725
  Transmission Date: 20221026
  Serious: Yes (Hospitalization, Other)
  Sender: FDA-Public Use
  Company Number: DE-002147023-NVSC2020DE031534

PATIENT
  Sex: Female

DRUGS (18)
  1. METHOTREXATE [Suspect]
     Active Substance: METHOTREXATE
     Indication: Product used for unknown indication
     Dosage: 15 MG, QW
     Route: 065
  2. ERELZI [Suspect]
     Active Substance: ETANERCEPT-SZZS
     Indication: Rheumatoid arthritis
     Dosage: UNK
     Route: 065
  3. AMLODIPINE [Concomitant]
     Active Substance: AMLODIPINE BESYLATE
     Indication: Product used for unknown indication
     Dosage: 10 MILLIGRAM, QD (5 MG, BID)
     Route: 065
  4. ATORVASTATIN [Concomitant]
     Active Substance: ATORVASTATIN
     Indication: Product used for unknown indication
     Dosage: 40 MG, QW
     Route: 065
  5. SPIRIVA [Concomitant]
     Active Substance: TIOTROPIUM BROMIDE MONOHYDRATE
     Indication: Product used for unknown indication
     Dosage: 25 UNK, QD
     Route: 065
  6. TORSEMIDE [Concomitant]
     Active Substance: TORSEMIDE
     Indication: Product used for unknown indication
     Dosage: 5 MG, QD
     Route: 065
  7. SPIRONOLACTONE [Concomitant]
     Active Substance: SPIRONOLACTONE
     Indication: Product used for unknown indication
     Dosage: 50 MG (HALF A TABLET PER DAY)
     Route: 065
  8. CHOLECALCIFEROL [Concomitant]
     Active Substance: CHOLECALCIFEROL
     Indication: Product used for unknown indication
     Dosage: 20000 UNK, QW
     Route: 065
  9. SYMBICORT [Concomitant]
     Active Substance: BUDESONIDE\FORMOTEROL FUMARATE DIHYDRATE
     Indication: Product used for unknown indication
     Dosage: 160/4,5?G ( TWICE A DAILY)
     Route: 065
  10. METAMIZOLE [Concomitant]
     Active Substance: METAMIZOLE
     Indication: Product used for unknown indication
     Dosage: 500 MG, PRN
     Route: 065
  11. PANTOPRAZOLE [Concomitant]
     Active Substance: PANTOPRAZOLE
     Indication: Product used for unknown indication
     Dosage: 40 MG, QD
     Route: 065
  12. METOPROLOL [Concomitant]
     Active Substance: METOPROLOL
     Indication: Product used for unknown indication
     Dosage: 95 MILLIGRAM, QD (47.5 MG, BID)
     Route: 065
  13. ORENCIA [Concomitant]
     Active Substance: ABATACEPT
     Indication: Product used for unknown indication
     Dosage: 125 MG, QW (26-OCT-2021)
     Route: 065
  14. ALBUTEROL [Concomitant]
     Active Substance: ALBUTEROL
     Indication: Product used for unknown indication
     Dosage: UNK UNK, PRN
     Route: 065
  15. APIXABAN [Concomitant]
     Active Substance: APIXABAN
     Indication: Product used for unknown indication
     Dosage: UNK MG, BID
     Route: 065
  16. ALLOPURINOL [Concomitant]
     Active Substance: ALLOPURINOL
     Indication: Product used for unknown indication
     Dosage: 100 MG, QW
     Route: 065
  17. MOXONIDINE [Concomitant]
     Active Substance: MOXONIDINE
     Indication: Product used for unknown indication
     Dosage: 0.3 UNK, BID
     Route: 065
  18. RISEDRONIC ACID [Concomitant]
     Active Substance: RISEDRONIC ACID
     Indication: Product used for unknown indication
     Dosage: 35 MG, QW
     Route: 065

REACTIONS (4)
  - Rheumatoid arthritis [Recovered/Resolved]
  - Respiratory tract infection [Not Recovered/Not Resolved]
  - Rash [Not Recovered/Not Resolved]
  - Oral herpes [Not Recovered/Not Resolved]

NARRATIVE: CASE EVENT DATE: 20190929
